FAERS Safety Report 18599062 (Version 1)
Quarter: 2020Q4

REPORT INFORMATION
  Report Type: Spontaneous
  Country: US (occurrence: US)
  Receive Date: 20201210
  Receipt Date: 20201210
  Transmission Date: 20210114
  Serious: Yes (Life-Threatening, Hospitalization, Other)
  Sender: FDA-Public Use
  Company Number: US-AUROBINDO-AUR-APL-2020-059604

PATIENT
  Age: 17 Year
  Sex: Female

DRUGS (1)
  1. IBUPROFEN. [Suspect]
     Active Substance: IBUPROFEN
     Indication: PRODUCT USED FOR UNKNOWN INDICATION
     Dosage: 2000 MILLIGRAM/KILOGRAM (TOTAL)
     Route: 065

REACTIONS (5)
  - Arrhythmia [Recovered/Resolved]
  - Cardiopulmonary failure [Recovered/Resolved]
  - Acute kidney injury [Recovered/Resolved]
  - Compartment syndrome [Recovered/Resolved]
  - Intentional overdose [Recovered/Resolved]
